FAERS Safety Report 15343614 (Version 5)
Quarter: 2022Q2

REPORT INFORMATION
  Report Type: Spontaneous
  Country: US (occurrence: US)
  Receive Date: 20180903
  Receipt Date: 20220527
  Transmission Date: 20220721
  Serious: No
  Sender: FDA-Public Use
  Company Number: US-PFIZER INC-2018352370

PATIENT
  Age: 50 Year
  Sex: Female

DRUGS (3)
  1. XELJANZ XR [Suspect]
     Active Substance: TOFACITINIB CITRATE
     Indication: Rheumatoid arthritis
     Dosage: 11 MG, 1X/DAY
     Route: 048
     Dates: start: 2018
  2. FOLIC ACID [Concomitant]
     Active Substance: FOLIC ACID
     Dosage: UNK
  3. METHOTREXATE [Concomitant]
     Active Substance: METHOTREXATE
     Dosage: UNK

REACTIONS (6)
  - Product dose omission in error [Unknown]
  - Therapeutic response unexpected [Unknown]
  - Illness [Unknown]
  - Nasopharyngitis [Not Recovered/Not Resolved]
  - Abdominal distension [Unknown]
  - Musculoskeletal stiffness [Unknown]
